FAERS Safety Report 18990816 (Version 3)
Quarter: 2021Q2

REPORT INFORMATION
  Report Type: Other
  Country: DE (occurrence: DE)
  Receive Date: 20210310
  Receipt Date: 20210426
  Transmission Date: 20210717
  Serious: Yes (Other)
  Sender: FDA-Public Use
  Company Number: DE-ROCHE-2783724

PATIENT
  Age: 41 Year
  Sex: Male

DRUGS (7)
  1. BUPRENORPHINE. [Suspect]
     Active Substance: BUPRENORPHINE
     Indication: PRODUCT USED FOR UNKNOWN INDICATION
     Route: 065
  2. MORPHINE [Suspect]
     Active Substance: MORPHINE
     Indication: PRODUCT USED FOR UNKNOWN INDICATION
     Route: 065
  3. DIAZEPAM. [Suspect]
     Active Substance: DIAZEPAM
     Indication: PRODUCT USED FOR UNKNOWN INDICATION
     Route: 065
  4. PREGABALIN. [Suspect]
     Active Substance: PREGABALIN
     Indication: PRODUCT USED FOR UNKNOWN INDICATION
     Route: 065
  5. CODEINE [Suspect]
     Active Substance: CODEINE
     Indication: PRODUCT USED FOR UNKNOWN INDICATION
     Route: 065
  6. LORAZEPAM. [Suspect]
     Active Substance: LORAZEPAM
     Indication: PRODUCT USED FOR UNKNOWN INDICATION
     Route: 065
  7. NORDAZEPAM [Suspect]
     Active Substance: NORDAZEPAM
     Indication: PRODUCT USED FOR UNKNOWN INDICATION
     Route: 065

REACTIONS (21)
  - Delusion [Unknown]
  - Confusional state [Unknown]
  - Somnolence [Unknown]
  - Substance abuse [Unknown]
  - Dysarthria [Unknown]
  - Aggression [Unknown]
  - Bradykinesia [Unknown]
  - Psychotic disorder [Unknown]
  - Drug dependence [Unknown]
  - Disorientation [Unknown]
  - Emotional poverty [Unknown]
  - Amnesia [Unknown]
  - Drug interaction [Unknown]
  - Miosis [Unknown]
  - Bradyphrenia [Unknown]
  - Psychotic behaviour [Unknown]
  - Impaired driving ability [Unknown]
  - Homicidal ideation [Unknown]
  - Gait disturbance [Unknown]
  - Mood swings [Unknown]
  - Depressed level of consciousness [Unknown]
